FAERS Safety Report 15075504 (Version 1)
Quarter: 2018Q2

REPORT INFORMATION
  Report Type: Spontaneous
  Country: US (occurrence: US)
  Receive Date: 20180627
  Receipt Date: 20180627
  Transmission Date: 20180711
  Serious: Yes (Hospitalization, Other)
  Sender: FDA-Public Use
  Company Number: US-SAOL THERAPEUTICS-2018SAO00348

PATIENT
  Age: 42 Year
  Sex: Female
  Weight: 40.82 kg

DRUGS (2)
  1. LIORESAL [Suspect]
     Active Substance: BACLOFEN
     Dosage: UNK
     Route: 037
     Dates: start: 20160217, end: 20161012
  2. BACLOFEN. [Suspect]
     Active Substance: BACLOFEN
     Indication: MUSCLE SPASTICITY
     Dosage: 22.78 ?G, \DAY
     Route: 037
     Dates: end: 2016

REACTIONS (4)
  - Headache [Recovered/Resolved]
  - Clonus [Unknown]
  - Cerebrospinal fluid leakage [Recovered/Resolved]
  - Hoffmann^s sign [Unknown]

NARRATIVE: CASE EVENT DATE: 20160712
